FAERS Safety Report 13786787 (Version 1)
Quarter: 2017Q3

REPORT INFORMATION
  Report Type: Spontaneous
  Country: US (occurrence: US)
  Receive Date: 20170725
  Receipt Date: 20170725
  Transmission Date: 20171127
  Serious: No
  Sender: FDA-Public Use
  Company Number: US-JNJFOC-20170614173

PATIENT
  Age: 60 Year
  Sex: Female
  Weight: 104.33 kg

DRUGS (2)
  1. MOTRIN [Concomitant]
     Active Substance: IBUPROFEN
     Indication: SWELLING
     Dosage: FOR 7 DAYS
     Route: 065
     Dates: start: 20170608
  2. TYLENOL EXTRA STRENGTH [Suspect]
     Active Substance: ACETAMINOPHEN
     Indication: GINGIVAL PAIN
     Route: 048
     Dates: start: 20170612

REACTIONS (1)
  - Drug ineffective for unapproved indication [Unknown]
